FAERS Safety Report 4860880-2 (Version None)
Quarter: 2005Q4

REPORT INFORMATION
  Report Type: 
  Country: None (occurrence: None)
  Receive Date: 20051216
  Receipt Date: 20051216
  Transmission Date: 20060501
  Serious: Yes (Hospitalization)
  Sender: FDA-Public Use
  Company Number: None

PATIENT
  Age: 53 Year
  Sex: Female
  Weight: 51.7101 kg

DRUGS (2)
  1. GEMCITABINE [Suspect]
     Indication: PANCREATIC CARCINOMA
     Dosage: 1.49 GMS WKLY X 3 IV
     Route: 042
     Dates: start: 20051114
  2. LAPATINIB [Suspect]
     Indication: PANCREATIC CARCINOMA
     Dosage: 1 GM / DAY QD PO
     Route: 048
     Dates: start: 20051114

REACTIONS (5)
  - ABDOMINAL DISTENSION [None]
  - ASCITES [None]
  - DIARRHOEA [None]
  - NAUSEA [None]
  - VOMITING [None]
